FAERS Safety Report 20753767 (Version 2)
Quarter: 2023Q2

REPORT INFORMATION
  Report Type: Spontaneous
  Country: US (occurrence: None)
  Receive Date: 20220426
  Receipt Date: 20230420
  Transmission Date: 20230722
  Serious: No
  Sender: FDA-Public Use
  Company Number: US-ROCHE-3037084

PATIENT
  Age: 92 Year
  Sex: Male

DRUGS (14)
  1. ESBRIET [Suspect]
     Active Substance: PIRFENIDONE
     Indication: Idiopathic pulmonary fibrosis
     Route: 048
     Dates: start: 202009, end: 20220210
  2. TYLENOL PM [Concomitant]
     Active Substance: ACETAMINOPHEN\DIPHENHYDRAMINE
     Dosage: AT BEDTIME PM(1 TABLET)
     Route: 048
  3. ALBUTEROL SULFATE [Concomitant]
     Active Substance: ALBUTEROL SULFATE
     Dosage: EVERY 4 HOURS PRN (2 PUFFS)
     Route: 048
  4. CITRACAL (UNITED STATES) [Concomitant]
     Dosage: TWO TABLETS DAILY
  5. TEMOVATE [Concomitant]
     Active Substance: CLOBETASOL PROPIONATE
     Dosage: TWICE DAILY TO AFFECTED AREAS
  6. PROSCAR [Concomitant]
     Active Substance: FINASTERIDE
  7. FLONASE [Concomitant]
     Active Substance: FLUTICASONE PROPIONATE
     Dosage: 2 DAYS TWICE DAILY
  8. LASIX [Concomitant]
     Active Substance: FUROSEMIDE
     Dosage: 40MG 1-2 TABLETS PRN
  9. LUTEIN [Concomitant]
     Active Substance: LUTEIN
  10. METOPROLOL [Concomitant]
     Active Substance: METOPROLOL
  11. SINGULAIR [Concomitant]
     Active Substance: MONTELUKAST SODIUM
  12. XARELTO [Concomitant]
     Active Substance: RIVAROXABAN
  13. ZOLOFT [Concomitant]
     Active Substance: SERTRALINE HYDROCHLORIDE
     Dosage: ONE-HALF TABLET EVERY EVENING
  14. FLOMAX [Concomitant]
     Active Substance: TAMSULOSIN HYDROCHLORIDE

REACTIONS (2)
  - Rash [Unknown]
  - Rash pruritic [Not Recovered/Not Resolved]

NARRATIVE: CASE EVENT DATE: 20211201
